FAERS Safety Report 22109283 (Version 1)
Quarter: 2023Q1

REPORT INFORMATION
  Report Type: Spontaneous
  Country: US (occurrence: None)
  Receive Date: 20230316
  Receipt Date: 20230316
  Transmission Date: 20230418
  Serious: Yes (unspecified)
  Sender: FDA-Public Use
  Company Number: None

PATIENT
  Age: 34 Year
  Sex: Male
  Weight: 77.11 kg

DRUGS (3)
  1. PARAGARD T 380A [Suspect]
     Active Substance: COPPER
  2. pantroprozal [Concomitant]
  3. women^s one a day multi vitamin [Concomitant]

REACTIONS (4)
  - Dysmenorrhoea [None]
  - Back pain [None]
  - Dizziness [None]
  - Ovarian cyst [None]

NARRATIVE: CASE EVENT DATE: 20230316
